FAERS Safety Report 8372165-0 (Version None)
Quarter: 2012Q2

REPORT INFORMATION
  Report Type: 
  Country: None (occurrence: None)
  Receive Date: 20120521
  Receipt Date: 20120509
  Transmission Date: 20120825
  Serious: Yes (Hospitalization)
  Sender: FDA-Public Use
  Company Number: US-BIOGENIDEC-2012BI016179

PATIENT
  Age: 60 Year
  Sex: Male

DRUGS (3)
  1. TYSABRI [Suspect]
     Route: 042
     Dates: start: 20090807
  2. TYSABRI [Suspect]
     Indication: MULTIPLE SCLEROSIS
     Route: 042
     Dates: start: 20061228, end: 20080718
  3. BACLOFEN [Concomitant]

REACTIONS (5)
  - FALL [None]
  - DEVICE CONNECTION ISSUE [None]
  - OVERDOSE [None]
  - DRUG WITHDRAWAL SYNDROME [None]
  - STAPHYLOCOCCAL INFECTION [None]
